FAERS Safety Report 9635235 (Version 2)
Quarter: 2013Q4

REPORT INFORMATION
  Report Type: Spontaneous
  Country: GB (occurrence: None)
  Receive Date: 20131017
  Receipt Date: 20131114
  Transmission Date: 20140711
  Serious: Yes (Other)
  Sender: FDA-Public Use
  Company Number: 2012-004566

PATIENT
  Age: 32 Year
  Sex: Male
  Weight: 94 kg

DRUGS (2)
  1. DORYX [Suspect]
     Indication: PROSTATITIS
     Route: 048
     Dates: start: 20120612, end: 20120626
  2. SERTRALINE (SERTRALINE) [Concomitant]

REACTIONS (7)
  - Anxiety [None]
  - Paranoia [None]
  - Panic attack [None]
  - Flashback [None]
  - Obsessive-compulsive disorder [None]
  - Depressed mood [None]
  - Condition aggravated [None]
